FAERS Safety Report 19996276 (Version 1)
Quarter: 2021Q4

REPORT INFORMATION
  Report Type: Spontaneous
  Country: US (occurrence: US)
  Receive Date: 20211026
  Receipt Date: 20211026
  Transmission Date: 20220303
  Serious: No
  Sender: FDA-Public Use
  Company Number: None

PATIENT
  Age: 68 Year
  Sex: Female
  Weight: 65.66 kg

DRUGS (12)
  1. EXEMESTANE [Suspect]
     Active Substance: EXEMESTANE
     Indication: Breast cancer
     Route: 048
     Dates: start: 20210901
  2. EVEROLIMUS [Suspect]
     Active Substance: EVEROLIMUS
     Indication: Breast cancer
     Route: 048
     Dates: start: 20210901
  3. FAMOTIDINE [Concomitant]
     Active Substance: FAMOTIDINE
  4. IBUPROFEN [Concomitant]
     Active Substance: IBUPROFEN
  5. LETROZOLE [Concomitant]
     Active Substance: LETROZOLE
  6. LISINOPRIL [Concomitant]
     Active Substance: LISINOPRIL
  7. LUNESTA [Concomitant]
     Active Substance: ESZOPICLONE
  8. VITAMINS [Concomitant]
     Active Substance: VITAMINS
  9. ONDANSETRON [Concomitant]
     Active Substance: ONDANSETRON
  10. PRAVASTATIN [Concomitant]
     Active Substance: PRAVASTATIN
  11. TAMOXIFEN [Concomitant]
     Active Substance: TAMOXIFEN
  12. ZOLPIDEM [Concomitant]
     Active Substance: ZOLPIDEM TARTRATE

REACTIONS (1)
  - Fatigue [None]

NARRATIVE: CASE EVENT DATE: 20211025
